FAERS Safety Report 20302342 (Version 1)
Quarter: 2022Q1

REPORT INFORMATION
  Report Type: Spontaneous
  Country: US (occurrence: US)
  Receive Date: 20220106
  Receipt Date: 20220106
  Transmission Date: 20220423
  Serious: Yes (Other)
  Sender: FDA-Public Use
  Company Number: US-AMGEN-USASP2021208359

PATIENT

DRUGS (15)
  1. FILGRASTIM [Suspect]
     Active Substance: FILGRASTIM
     Indication: Haematopoietic stem cell mobilisation
     Dosage: 10 MICROGRAM/KILOGRAM, QD (STARTING DAY 14 UNTIL COLLECTION OF APPROX. 5 X 10^6 CD34+ CELIS/KG)
     Route: 065
  2. MELPHALAN [Concomitant]
     Active Substance: MELPHALAN
     Indication: Philadelphia positive acute lymphocytic leukaemia
     Dosage: 100 MILLIGRAM/SQ. METER, QD (ON DAYS -2 AND -1)
     Route: 042
  3. MELPHALAN [Concomitant]
     Active Substance: MELPHALAN
     Indication: Autologous haematopoietic stem cell transplant
  4. ETOPOSIDE [Concomitant]
     Active Substance: ETOPOSIDE
     Indication: Philadelphia positive acute lymphocytic leukaemia
     Dosage: UNK UNK, QD (10 MG/KG OR 5 MG/KG IF AGE MORE THAN 65) CONTINUOUS IV FOR 4 DAYS
     Route: 042
  5. ETOPOSIDE [Concomitant]
     Active Substance: ETOPOSIDE
     Indication: Autologous haematopoietic stem cell transplant
  6. CYTARABINE [Concomitant]
     Active Substance: CYTARABINE
     Indication: Philadelphia positive acute lymphocytic leukaemia
     Dosage: UNK UNK, Q12H (2 G/M2 OR 1 G/M2 IF AGE MORE THAN 65) FOR 8 DOSES
     Route: 042
  7. CYTARABINE [Concomitant]
     Active Substance: CYTARABINE
     Indication: Autologous haematopoietic stem cell transplant
  8. DASATINIB [Concomitant]
     Active Substance: DASATINIB
     Indication: Philadelphia positive acute lymphocytic leukaemia
     Dosage: 140 MILLIGRAM, QD
     Route: 048
  9. DASATINIB [Concomitant]
     Active Substance: DASATINIB
     Indication: Nervous system disorder prophylaxis
  10. DEXAMETHASONE [Concomitant]
     Active Substance: DEXAMETHASONE
     Indication: Philadelphia positive acute lymphocytic leukaemia
     Dosage: 10 MILLIGRAM/SQ. METER, QD (ORALLY/IV, ADMINISTERED FROM DAYS 1-7)
  11. VINCRISTINE [Concomitant]
     Active Substance: VINCRISTINE
     Indication: Philadelphia positive acute lymphocytic leukaemia
     Dosage: UNK
  12. VINCRISTINE [Concomitant]
     Active Substance: VINCRISTINE
     Indication: Nervous system disorder prophylaxis
  13. DAUNORUBICIN [Concomitant]
     Active Substance: DAUNORUBICIN
     Indication: Philadelphia positive acute lymphocytic leukaemia
     Dosage: UNK
  14. METHOTREXATE [Concomitant]
     Active Substance: METHOTREXATE
     Indication: Philadelphia positive acute lymphocytic leukaemia
     Dosage: UNK
  15. METHOTREXATE [Concomitant]
     Active Substance: METHOTREXATE
     Indication: Nervous system disorder prophylaxis

REACTIONS (1)
  - Engraft failure [Unknown]
